FAERS Safety Report 23361024 (Version 1)
Quarter: 2024Q1

REPORT INFORMATION
  Report Type: Spontaneous
  Country: US (occurrence: None)
  Receive Date: 20240102
  Receipt Date: 20240102
  Transmission Date: 20240410
  Serious: No
  Sender: FDA-Public Use
  Company Number: None

PATIENT

DRUGS (2)
  1. DOBUTAMINE HYDROCHLORIDE [Suspect]
     Active Substance: DOBUTAMINE HYDROCHLORIDE
     Dosage: OTHER STRENGTH : 1,000 MG PER 250ML;?
     Route: 042
  2. DOBUTAMINE HYDROCHLORIDE [Suspect]
     Active Substance: DOBUTAMINE HYDROCHLORIDE
     Dosage: OTHER STRENGTH : 500 MG PER 250 ML;?
     Route: 042

REACTIONS (3)
  - Product packaging confusion [None]
  - Product label confusion [None]
  - Wrong product stored [None]
